FAERS Safety Report 4941415-2 (Version None)
Quarter: 2006Q1

REPORT INFORMATION
  Report Type: 
  Country: None (occurrence: None)
  Receive Date: 20060310
  Receipt Date: 20060310
  Transmission Date: 20060701
  Serious: No
  Sender: FDA-Public Use
  Company Number: None

PATIENT
  Age: 23 Year
  Sex: Male

DRUGS (1)
  1. VIGAMOX [Suspect]
     Indication: KERATITIS
     Dosage: 1 GTT 05 Q2H X 1 DAY AROUND THE  CLOCK
     Dates: start: 20051103, end: 20051104

REACTIONS (4)
  - ACANTHAMOEBA INFECTION [None]
  - KERATITIS [None]
  - KERATITIS FUNGAL [None]
  - POOR QUALITY DRUG ADMINISTERED [None]
